FAERS Safety Report 8606610-X (Version None)
Quarter: 2012Q3

REPORT INFORMATION
  Report Type: 
  Country: None (occurrence: None)
  Receive Date: 20120820
  Receipt Date: 20120807
  Transmission Date: 20120928
  Serious: Yes (Hospitalization, Other)
  Sender: FDA-Public Use
  Company Number: FR-FRI-1000037839

PATIENT
  Sex: Male

DRUGS (12)
  1. MOVIPREP [Concomitant]
     Indication: CONSTIPATION
     Dosage: 2 DF
     Route: 048
     Dates: start: 20120604, end: 20120611
  2. DIGOXIN [Concomitant]
     Route: 048
  3. CELIPROLOL [Concomitant]
     Route: 048
  4. LAMALINE [Suspect]
     Route: 048
  5. CITALOPRAM HYDROBROMIDE [Suspect]
     Indication: DEPRESSION
     Dosage: 1 DF
     Route: 048
  6. PREVISCAN [Suspect]
     Indication: ARRHYTHMIA
     Dosage: 1 + 1/4 TABLETS DAILY
     Route: 048
     Dates: end: 20120605
  7. ZOLPIDEM [Concomitant]
     Route: 048
  8. NORMACOL [Concomitant]
     Indication: CONSTIPATION
     Route: 048
     Dates: start: 20120604, end: 20120606
  9. IRBESARTAN [Concomitant]
  10. TROSPIUM CHLORIDE [Concomitant]
     Route: 048
  11. LAMALINE [Suspect]
     Indication: PAIN
     Dosage: 2 TABLETS 3 TO 4 TIMES DAILY
     Route: 048
     Dates: start: 20120604
  12. FELODIPINE [Concomitant]
     Route: 048

REACTIONS (1)
  - HAEMATOMA [None]
